FAERS Safety Report 18388569 (Version 1)
Quarter: 2020Q4

REPORT INFORMATION
  Report Type: Spontaneous
  Country: ES (occurrence: ES)
  Receive Date: 20201015
  Receipt Date: 20201015
  Transmission Date: 20210114
  Serious: Yes (Hospitalization)
  Sender: FDA-Public Use
  Company Number: NVSC2020ES273264

PATIENT
  Age: 87 Year
  Sex: Female

DRUGS (3)
  1. RISPERIDONA [Concomitant]
     Active Substance: RISPERIDONE
     Indication: AGITATION
     Dosage: 1 MG, Q24H (1 MG DIA)
     Route: 048
     Dates: start: 20200602, end: 20200609
  2. FUROSEMIDE. [Interacting]
     Active Substance: FUROSEMIDE
     Indication: CARDIAC FAILURE
     Dosage: 40 MG, Q12H (40 MG CADA 12 HORAS)
     Route: 048
     Dates: start: 20200602, end: 20200609
  3. LOSARTAN. [Suspect]
     Active Substance: LOSARTAN
     Indication: HYPERTENSION
     Dosage: 12.5 MG, Q24H (12,5 MG DIA)
     Route: 048
     Dates: start: 20200602, end: 20200609

REACTIONS (1)
  - Acute kidney injury [Recovered/Resolved]

NARRATIVE: CASE EVENT DATE: 20200609
